FAERS Safety Report 17495634 (Version 9)
Quarter: 2021Q3

REPORT INFORMATION
  Report Type: Spontaneous
  Country: US (occurrence: US)
  Receive Date: 20200304
  Receipt Date: 20210805
  Transmission Date: 20211014
  Serious: Yes (Hospitalization, Other)
  Sender: FDA-Public Use
  Company Number: US-PFIZER INC-2020093189

PATIENT
  Age: 78 Year
  Sex: Female
  Weight: 70 kg

DRUGS (14)
  1. LYRICA [Suspect]
     Active Substance: PREGABALIN
     Indication: NEUROPATHY PERIPHERAL
     Dosage: 50 MG, 3X/DAY (50MG; TAKE 3 DAILY BY MOUTH)
     Route: 048
     Dates: start: 2017
  2. LYRICA [Suspect]
     Active Substance: PREGABALIN
     Indication: THERMAL BURN
  3. LEVOTHYROXINE. [Concomitant]
     Active Substance: LEVOTHYROXINE
     Indication: THYROID DISORDER
     Dosage: 0.125 MG, DAILY (TAKE ONCE DAILY BY MOUTH)
     Route: 048
  4. CARVEDILOL. [Concomitant]
     Active Substance: CARVEDILOL
     Indication: BLOOD PRESSURE ABNORMAL
  5. DULOXETINE HCL [Concomitant]
     Active Substance: DULOXETINE HYDROCHLORIDE
     Dosage: 60 MG, DAILY
     Route: 048
  6. FLUTICASONE PROPIONATE. [Concomitant]
     Active Substance: FLUTICASONE PROPIONATE
     Dosage: 1 DF, 2X/DAY (1 SPRAY IN EACH NOSTRIL, 2X/DAY)
  7. NITROFURANT MACROCRYSTALS [Concomitant]
     Dosage: 100 MG, 2X/DAY (100 MG, EVERY 12 HOURS DAILY)
     Route: 048
  8. KETOCONAZOLE. [Concomitant]
     Active Substance: KETOCONAZOLE
     Dosage: UNK, 1X/DAY (ONCE DAILY FOR 1 WEEK, THEN WEEKLY FOR 1 MONTH AND AS NEEDED)
  9. DULOXETINE HCL [Concomitant]
     Active Substance: DULOXETINE HYDROCHLORIDE
     Dosage: 80 MG, DAILY ( 1 DF)
     Route: 048
  10. NORTRIPTYLINE [Concomitant]
     Active Substance: NORTRIPTYLINE
     Dosage: UNK [2 TABS 1? 10 MG, 1? 50MG]
     Dates: start: 2017
  11. LISINOPRIL. [Concomitant]
     Active Substance: LISINOPRIL
     Dosage: 5 MG, 1X/DAY
     Route: 048
     Dates: start: 2018
  12. CARVEDILOL. [Concomitant]
     Active Substance: CARVEDILOL
     Indication: CARDIAC DISORDER
     Dosage: 3.125 MG, 2X/DAY WITH MEALS
     Route: 048
     Dates: start: 2018
  13. NORTRIPTYLINE HCL [Concomitant]
     Active Substance: NORTRIPTYLINE HYDROCHLORIDE
     Indication: NEUROPATHY PERIPHERAL
     Dosage: 60 MG, 1X/DAY (60MG; TAKE ONCE DAILY BY MOUTH)
     Route: 048
     Dates: start: 2017
  14. SHINGRIX [Concomitant]
     Active Substance: RECOMBINANT VARICELLA ZOSTER VIRUS (VZV) GLYCOPROTEIN E
     Dosage: 0.5 MG, (NOW AND IN 2?6 MONTH SECOND SERIES)
     Route: 030

REACTIONS (12)
  - Femur fracture [Recovered/Resolved with Sequelae]
  - Gait inability [Unknown]
  - Visual impairment [Recovered/Resolved]
  - Product label issue [Recovered/Resolved]
  - Confusional state [Unknown]
  - Diarrhoea [Recovered/Resolved]
  - Fall [Unknown]
  - Influenza [Recovered/Resolved]
  - Headache [Recovered/Resolved]
  - Memory impairment [Unknown]
  - Pain [Recovered/Resolved]
  - Deafness [Unknown]

NARRATIVE: CASE EVENT DATE: 20200225
